FAERS Safety Report 16213318 (Version 2)
Quarter: 2019Q2

REPORT INFORMATION
  Report Type: Spontaneous
  Country: CH (occurrence: CH)
  Receive Date: 20190418
  Receipt Date: 20190614
  Transmission Date: 20190711
  Serious: Yes (Other)
  Sender: FDA-Public Use
  Company Number: CH-ASTRAZENECA-2019SE55682

PATIENT
  Age: 76 Year
  Sex: Male

DRUGS (5)
  1. CARDIO-ASPIRIN [Concomitant]
     Dates: end: 20181219
  2. CYCLOSPORINE. [Concomitant]
     Active Substance: CYCLOSPORINE
  3. BRILIQUE [Suspect]
     Active Substance: TICAGRELOR
     Route: 048
     Dates: start: 201812, end: 201812
  4. BRILIQUE [Suspect]
     Active Substance: TICAGRELOR
     Route: 048
     Dates: end: 201812
  5. ELTROMBOPAG [Concomitant]
     Active Substance: ELTROMBOPAG

REACTIONS (4)
  - Thrombocytopenia [Recovered/Resolved]
  - Cardiac failure [Unknown]
  - Petechiae [Recovered/Resolved]
  - Haemorrhage [Recovered/Resolved]

NARRATIVE: CASE EVENT DATE: 201808
